FAERS Safety Report 9172855 (Version 2)
Quarter: 2013Q2

REPORT INFORMATION
  Report Type: Report from Study
  Country: CA (occurrence: CA)
  Receive Date: 20130319
  Receipt Date: 20130426
  Transmission Date: 20140414
  Serious: Yes (Hospitalization)
  Sender: FDA-Public Use
  Company Number: CA-JNJFOC-20130302923

PATIENT
  Sex: Female
  Weight: 58 kg

DRUGS (3)
  1. REMICADE [Suspect]
     Indication: COLITIS
     Dosage: FIRST 0, 2, 6 WEEKS
     Route: 042
     Dates: start: 20130121
  2. REMICADE [Suspect]
     Indication: CROHN^S DISEASE
     Dosage: FIRST 0, 2, 6 WEEKS
     Route: 042
     Dates: start: 20130121
  3. ALERTEC [Concomitant]
     Route: 065

REACTIONS (5)
  - Pyrexia [Recovered/Resolved]
  - Nausea [Unknown]
  - Vomiting [Unknown]
  - Diarrhoea [Unknown]
  - Fistula [Unknown]
